FAERS Safety Report 5534031-5 (Version None)
Quarter: 2007Q4

REPORT INFORMATION
  Report Type: 
  Country: None (occurrence: None)
  Receive Date: 20071205
  Receipt Date: 20071130
  Transmission Date: 20080405
  Serious: Yes (Other)
  Sender: FDA-Public Use
  Company Number: PHNU2007DE03991

PATIENT
  Age: 61 Year
  Sex: Male

DRUGS (7)
  1. CIPRAMIL [Concomitant]
  2. LANTUS [Concomitant]
  3. LOCOL [Concomitant]
  4. METOPROLOL [Concomitant]
  5. CAPTOPRIL [Concomitant]
  6. TILIDIN [Concomitant]
  7. ZOMETA [Suspect]
     Indication: MULTIPLE MYELOMA
     Dosage: 4 MG, QMO
     Route: 042

REACTIONS (5)
  - BLOOD GLUCOSE INCREASED [None]
  - GINGIVITIS [None]
  - JAW OPERATION [None]
  - OSTEONECROSIS [None]
  - PRIMARY SEQUESTRUM [None]
